FAERS Safety Report 14591908 (Version 1)
Quarter: 2018Q1

REPORT INFORMATION
  Report Type: Report from Study
  Country: IT (occurrence: IT)
  Receive Date: 20180302
  Receipt Date: 20180302
  Transmission Date: 20180509
  Serious: Yes (Other)
  Sender: FDA-Public Use
  Company Number: IT-TEVA-2018-IT-860778

PATIENT
  Age: 83 Year
  Sex: Male

DRUGS (8)
  1. TACHIDOL 500 MG/30 MG GRANULATO EFFERVESCENTE [Concomitant]
     Active Substance: ACETAMINOPHEN\CODEINE PHOSPHATE
  2. COUMADIN [Concomitant]
     Active Substance: WARFARIN SODIUM
  3. RAMIPRIL. [Concomitant]
     Active Substance: RAMIPRIL
  4. GABAPENTIN TEVA PHARMA 300 MG CAPSULE RIGIDE [Suspect]
     Active Substance: GABAPENTIN
     Indication: PARAESTHESIA
     Route: 048
     Dates: start: 20171202, end: 20171205
  5. SELOKEN 100 MG COMPRESSE [Concomitant]
     Active Substance: METOPROLOL
  6. LASIX [Concomitant]
     Active Substance: FUROSEMIDE
  7. METFORMIN HYDROCHLORIDE. [Concomitant]
     Active Substance: METFORMIN HYDROCHLORIDE
  8. KANRENOL? 25 COMPRESSE [Concomitant]

REACTIONS (2)
  - Urinary incontinence [Recovering/Resolving]
  - Disorientation [Recovering/Resolving]

NARRATIVE: CASE EVENT DATE: 20171204
